FAERS Safety Report 5339526-5 (Version None)
Quarter: 2007Q2

REPORT INFORMATION
  Report Type: 
  Country: None (occurrence: None)
  Receive Date: 20070404
  Receipt Date: 20060711
  Transmission Date: 20071010
  Serious: Yes (Other)
  Sender: FDA-Public Use
  Company Number: 2006029480

PATIENT
  Age: 19 Year
  Sex: Male

DRUGS (9)
  1. GEODON [Suspect]
     Indication: BIPOLAR DISORDER
     Dosage: 160 MG (80 MG, 2 IN 1 D) UNKNOWN
     Dates: start: 20060201, end: 20060101
  2. SEROQUEL [Concomitant]
  3. ZOLOFT [Concomitant]
  4. RITALIN [Concomitant]
  5. TRILEPTAL [Concomitant]
  6. CLONIDIINE (CLONIDINE) [Concomitant]
  7. BENADRYL [Concomitant]
  8. ROZEREM [Concomitant]
  9. ABILIFY [Concomitant]

REACTIONS (2)
  - PHARYNGEAL OEDEMA [None]
  - SWOLLEN TONGUE [None]
